FAERS Safety Report 15492268 (Version 1)
Quarter: 2018Q4

REPORT INFORMATION
  Report Type: Spontaneous
  Country: FR (occurrence: FR)
  Receive Date: 20181012
  Receipt Date: 20181012
  Transmission Date: 20190205
  Serious: Yes (Hospitalization, Other)
  Sender: FDA-Public Use
  Company Number: FR-AUROBINDO-AUR-APL-2018-049963

PATIENT
  Age: 54 Year
  Sex: Male
  Weight: 53 kg

DRUGS (3)
  1. OXAZEPAM. [Suspect]
     Active Substance: OXAZEPAM
     Indication: SUICIDE ATTEMPT
     Dosage: 300 MILLIGRAM
     Route: 048
     Dates: start: 20180827, end: 20180827
  2. PAROXETINE. [Suspect]
     Active Substance: PAROXETINE
     Indication: SUICIDE ATTEMPT
     Dosage: 280 MILLIGRAM
     Route: 048
     Dates: start: 20180827, end: 20180827
  3. PARACETAMOL [Suspect]
     Active Substance: ACETAMINOPHEN
     Indication: SUICIDE ATTEMPT
     Dosage: 16 GRAM
     Route: 048
     Dates: start: 20180827, end: 20180827

REACTIONS (3)
  - Mydriasis [Recovered/Resolved]
  - Abdominal pain [Recovered/Resolved]
  - Depressed level of consciousness [Recovered/Resolved]

NARRATIVE: CASE EVENT DATE: 20180827
